FAERS Safety Report 5006150-3 (Version None)
Quarter: 2006Q1

REPORT INFORMATION
  Report Type: 
  Country: None (occurrence: None)
  Receive Date: 20060328
  Receipt Date: 20060201
  Transmission Date: 20060701
  Serious: Yes (Hospitalization)
  Sender: FDA-Public Use
  Company Number: 06P-163-0323818-00

PATIENT
  Age: 55 Year
  Sex: Female
  Weight: 94.8018 kg

DRUGS (8)
  1. HUMIRA [Suspect]
     Indication: RHEUMATOID ARTHRITIS
     Dosage: 40 MG, 1 IN 2 WK, SUBCUTANEOUS
     Route: 058
     Dates: start: 20060124, end: 20060128
  2. DIOVAN [Concomitant]
  3. FOLIC ACID [Concomitant]
  4. METHOTREXATE [Concomitant]
  5. IBUPROFEN [Concomitant]
  6. ASPIRIN [Concomitant]
  7. CLOPIDOGREL BISULFATE [Concomitant]
  8. RAMIPRIL [Concomitant]

REACTIONS (1)
  - MYOCARDIAL INFARCTION [None]
